FAERS Safety Report 9406572 (Version 1)
Quarter: 2013Q3

REPORT INFORMATION
  Report Type: Spontaneous
  Country: BR (occurrence: BR)
  Receive Date: 20130718
  Receipt Date: 20130718
  Transmission Date: 20140515
  Serious: Yes (Other)
  Sender: FDA-Public Use
  Company Number: BR-ROCHE-690993

PATIENT
  Sex: Female
  Weight: 49 kg

DRUGS (9)
  1. RIVOTRIL [Suspect]
     Indication: INSOMNIA
     Route: 048
  2. RIVOTRIL [Suspect]
     Indication: LABYRINTHITIS
     Dosage: DOSE DECREASED
     Route: 048
  3. RIVOTRIL [Suspect]
     Dosage: DOSE INCREASED
     Route: 048
  4. MINIDIAB [Concomitant]
     Indication: BLOOD GLUCOSE ABNORMAL
     Route: 048
  5. GINKGO BILOBA [Concomitant]
     Indication: DIZZINESS
     Dosage: OTHER INDICATIONS REPORTED AS LABYRINTHITIS AND FORGETFULNESS
     Route: 048
  6. ALPRAZOLAM [Concomitant]
     Indication: SEDATIVE THERAPY
     Route: 048
  7. PRESSAT [Concomitant]
     Indication: HYPERTENSION
     Route: 048
  8. ATENOLOL [Concomitant]
     Indication: HYPERTENSION
     Dosage: FREQUENCY REPORTED AS: 0.5 TABLET PER DAY AFTER BREAKFAST
     Route: 048
  9. OMEPRAZOLE [Concomitant]

REACTIONS (20)
  - Cervix disorder [Not Recovered/Not Resolved]
  - Alopecia [Not Recovered/Not Resolved]
  - Nail disorder [Recovering/Resolving]
  - Onychoclasis [Recovering/Resolving]
  - Drug level decreased [Recovered/Resolved]
  - Vitamin A deficiency [Recovering/Resolving]
  - Anxiety [Unknown]
  - Hair texture abnormal [Recovering/Resolving]
  - Dry skin [Recovering/Resolving]
  - Ear pain [Recovered/Resolved]
  - Muscular weakness [Not Recovered/Not Resolved]
  - Back pain [Not Recovered/Not Resolved]
  - Scoliosis [Unknown]
  - Osteoarthritis [Unknown]
  - Gait disturbance [Not Recovered/Not Resolved]
  - Tremor [Not Recovered/Not Resolved]
  - Tremor [Not Recovered/Not Resolved]
  - Gastrointestinal disorder [Not Recovered/Not Resolved]
  - Helicobacter infection [Unknown]
  - Dysgeusia [Not Recovered/Not Resolved]
